FAERS Safety Report 5001795-9 (Version None)
Quarter: 2006Q2

REPORT INFORMATION
  Report Type: 
  Country: None (occurrence: None)
  Receive Date: 20060512
  Receipt Date: 20060512
  Transmission Date: 20061013
  Serious: Yes (Hospitalization)
  Sender: FDA-Public Use
  Company Number: None

PATIENT
  Sex: Female

DRUGS (1)
  1. AMBIEN [Suspect]
     Indication: INSOMNIA
     Dosage: 10 1 PO HS PO
     Route: 048
     Dates: start: 20050201, end: 20060501

REACTIONS (8)
  - CONTUSION [None]
  - FOOT FRACTURE [None]
  - HAND FRACTURE [None]
  - LOWER LIMB FRACTURE [None]
  - POLYTRAUMATISM [None]
  - RIB FRACTURE [None]
  - ROAD TRAFFIC ACCIDENT [None]
  - THERMAL BURN [None]
